FAERS Safety Report 25817145 (Version 1)
Quarter: 2025Q3

REPORT INFORMATION
  Report Type: Spontaneous
  Country: US (occurrence: US)
  Receive Date: 20250918
  Receipt Date: 20250918
  Transmission Date: 20251020
  Serious: Yes (Other)
  Sender: UNIQUE PHARMACEUTICAL LABORATORIES
  Company Number: US-UNIQUE PHARMACEUTICAL LABORATORIES-20250900057

PATIENT

DRUGS (3)
  1. FLUCONAZOLE [Suspect]
     Active Substance: FLUCONAZOLE
     Indication: Cryptococcosis
     Route: 065
  2. AMPHOTERICIN B [Concomitant]
     Active Substance: AMPHOTERICIN B
     Indication: Cryptococcosis
     Route: 042
  3. FLUCYTOSINE [Concomitant]
     Active Substance: FLUCYTOSINE
     Indication: Cryptococcosis

REACTIONS (3)
  - Device malfunction [Unknown]
  - Hydrocephalus [Unknown]
  - Drug ineffective [Unknown]
